FAERS Safety Report 6842776-X (Version None)
Quarter: 2010Q3

REPORT INFORMATION
  Report Type: 
  Country: None (occurrence: None)
  Receive Date: 20100714
  Receipt Date: 20071013
  Transmission Date: 20110219
  Serious: No
  Sender: FDA-Public Use
  Company Number: US-PFIZER INC-2007065367

PATIENT
  Sex: Male
  Weight: 39 kg

DRUGS (4)
  1. CHANTIX [Suspect]
     Indication: SMOKING CESSATION THERAPY
     Dates: start: 20070301, end: 20070301
  2. SOMA [Concomitant]
     Indication: BACK DISORDER
  3. PERCOCET [Concomitant]
     Indication: BACK DISORDER
  4. NEXIUM [Concomitant]

REACTIONS (1)
  - DRUG INEFFECTIVE [None]
